FAERS Safety Report 11737595 (Version 2)
Quarter: 2015Q4

REPORT INFORMATION
  Report Type: Spontaneous
  Country: US (occurrence: US)
  Receive Date: 20151113
  Receipt Date: 20151216
  Transmission Date: 20160304
  Serious: Yes (Other)
  Sender: FDA-Public Use
  Company Number: US-SA-2015SA177485

PATIENT
  Age: 60 Year
  Sex: Female
  Weight: 40.82 kg

DRUGS (30)
  1. ASPIRIN. [Concomitant]
     Active Substance: ASPIRIN
  2. HUMALOG [Concomitant]
     Active Substance: INSULIN LISPRO
     Dosage: DINNER, NO MORE THAN 20 UNITS EVER. DOSE:20 UNIT(S)
  3. LATISSE [Concomitant]
     Active Substance: BIMATOPROST
  4. MIRALAX [Concomitant]
     Active Substance: POLYETHYLENE GLYCOL 3350
  5. PANTHENOL/RETINOL/THIAMINE HYDROCHLORIDE/ASCORBIC ACID/ERGOCALCIFEROL/FOLIC ACID/RIBOFLAVIN/NICOTINA [Concomitant]
  6. POTASSIUM GLUCONATE [Concomitant]
     Active Substance: POTASSIUM GLUCONATE
     Dosage: 595MG
  7. BIOTIN [Concomitant]
     Active Substance: BIOTIN
  8. METFORMIN [Concomitant]
     Active Substance: METFORMIN HYDROCHLORIDE
     Dosage: 1000MG
  9. SPIRONOLACTONE. [Concomitant]
     Active Substance: SPIRONOLACTONE
     Dosage: 100MG
  10. GLUCOSE [Concomitant]
     Active Substance: DEXTROSE
     Dosage: 4 GRAMS OF CARBS
  11. QUINAPRIL [Concomitant]
     Active Substance: QUINAPRIL\QUINAPRIL HYDROCHLORIDE
     Dosage: AT NOON
  12. OXYCONTIN [Concomitant]
     Active Substance: OXYCODONE HYDROCHLORIDE
  13. OXYCODONE [Concomitant]
     Active Substance: OXYCODONE
     Dosage: EVERY 8 HOURS (TIRED)
  14. BORON [Concomitant]
     Active Substance: BORON
  15. SOLOSTAR [Concomitant]
     Active Substance: DEVICE
     Indication: TYPE 2 DIABETES MELLITUS
  16. CALCIUM [Concomitant]
     Active Substance: CALCIUM
     Dosage: 600MG
  17. OMEGA 3 [Concomitant]
     Active Substance: OMEGA-3 FATTY ACIDS
     Dosage: 1200MG
     Route: 065
  18. HYALURONIC ACID [Concomitant]
     Active Substance: HYALURONIC ACID
  19. DICYCLOMINE [Concomitant]
     Active Substance: DICYCLOMINE HYDROCHLORIDE
  20. TIZANIDINE. [Concomitant]
     Active Substance: TIZANIDINE
  21. REQUIP [Concomitant]
     Active Substance: ROPINIROLE HYDROCHLORIDE
     Dosage: 4MG
  22. VITAMIN D3 [Concomitant]
     Active Substance: CHOLECALCIFEROL
  23. HUMALOG [Concomitant]
     Active Substance: INSULIN LISPRO
     Dosage: MORNING AND LUNCH, SLIDING SCALE DOSE:17 UNIT(S)
  24. PROGESTERONE. [Concomitant]
     Active Substance: PROGESTERONE
  25. LANTUS SOLOSTAR [Suspect]
     Active Substance: INSULIN GLARGINE
     Indication: TYPE 2 DIABETES MELLITUS
     Dosage: STARTED 5 TO 6 YEARS BACK DOSE:40 UNIT(S)
     Route: 058
  26. VITAMIN C [Concomitant]
     Active Substance: ASCORBIC ACID
     Dosage: 1000MG
     Route: 065
  27. ZINC [Concomitant]
     Active Substance: ZINC\ZINC CHLORIDE
     Dosage: 50MG
  28. ESTRADIOL. [Concomitant]
     Active Substance: ESTRADIOL
     Dosage: 2MG MORN AND 1MG EVENING.
  29. LINZESS [Concomitant]
     Active Substance: LINACLOTIDE
  30. FLONASE [Concomitant]
     Active Substance: FLUTICASONE PROPIONATE

REACTIONS (3)
  - Surgery [Unknown]
  - Shoulder arthroplasty [Unknown]
  - Drug administration error [Unknown]

NARRATIVE: CASE EVENT DATE: 2011
